FAERS Safety Report 10687264 (Version 1)
Quarter: 2014Q4

REPORT INFORMATION
  Report Type: Spontaneous
  Country: GB (occurrence: None)
  Receive Date: 20141230
  Receipt Date: 20141230
  Transmission Date: 20150529
  Serious: Yes (Hospitalization)
  Sender: FDA-Public Use
  Company Number: 2687405

PATIENT
  Age: 57 Year
  Sex: Female

DRUGS (1)
  1. DOCETAXEL. [Suspect]
     Active Substance: DOCETAXEL
     Indication: BREAST CANCER
     Dosage: UNK, INTRAVENOUS (NOT OTHERWISE SPECIFIED)
     Route: 042
     Dates: start: 20141128, end: 20141128

REACTIONS (5)
  - Pyrexia [None]
  - Diarrhoea [None]
  - Hypokalaemia [None]
  - Chills [None]
  - Rash erythematous [None]

NARRATIVE: CASE EVENT DATE: 201412
